FAERS Safety Report 8586047-2 (Version None)
Quarter: 2012Q3

REPORT INFORMATION
  Report Type: 
  Country: None (occurrence: None)
  Receive Date: 20120810
  Receipt Date: 20120801
  Transmission Date: 20120928
  Serious: Yes (Hospitalization)
  Sender: FDA-Public Use
  Company Number: JP-AMGEN-JPNSP2012046548

PATIENT
  Age: 67 Year
  Sex: Male
  Weight: 47 kg

DRUGS (14)
  1. DEPAS [Concomitant]
     Indication: SLEEP DISORDER
     Route: 048
     Dates: start: 20111201
  2. OXYCODONE HYDROCHLORIDE [Concomitant]
     Indication: CANCER PAIN
     Dosage: AS NEEDED
     Route: 048
     Dates: start: 20120521
  3. LOXONIN [Concomitant]
     Indication: BACK PAIN
     Route: 048
     Dates: start: 20120621
  4. OXYCONTIN [Concomitant]
     Indication: CANCER PAIN
     Route: 048
     Dates: start: 20120521
  5. ADONA [Concomitant]
     Indication: HAEMATURIA
     Route: 041
     Dates: start: 20120707, end: 20120718
  6. ONEALFA [Concomitant]
     Indication: HYPOCALCAEMIA
     Route: 048
     Dates: start: 20120718
  7. RANMARK [Suspect]
     Indication: METASTASES TO BONE
     Dosage: UNKNOWN
     Route: 058
     Dates: start: 20120621
  8. MAGLAX [Concomitant]
     Indication: CONSTIPATION
     Route: 048
     Dates: start: 20120714
  9. ZOSYN [Concomitant]
     Indication: INFECTION
     Route: 041
     Dates: start: 20120707, end: 20120714
  10. ASPARA-CA [Concomitant]
     Indication: HYPOCALCAEMIA
     Route: 048
     Dates: start: 20120622
  11. CALCIUM CARBONATE [Concomitant]
     Indication: HYPOCALCAEMIA
     Route: 041
     Dates: start: 20120711, end: 20120721
  12. CALCIUM CARBONATE [Concomitant]
     Indication: HYPOCALCAEMIA
     Route: 048
     Dates: start: 20120720
  13. RANMARK [Suspect]
     Dosage: UNKNOWN
     Route: 058
     Dates: start: 20120621
  14. MIRTAZAPINE [Concomitant]
     Indication: DEPRESSION
     Route: 048
     Dates: start: 20111201

REACTIONS (1)
  - HYPOCALCAEMIA [None]
